FAERS Safety Report 17734410 (Version 1)
Quarter: 2020Q2

REPORT INFORMATION
  Report Type: Spontaneous
  Country: CA (occurrence: CA)
  Receive Date: 20200501
  Receipt Date: 20200501
  Transmission Date: 20200714
  Serious: No
  Sender: FDA-Public Use
  Company Number: None

PATIENT
  Age: 49 Year
  Sex: Male

DRUGS (5)
  1. TOPAMAX [Suspect]
     Active Substance: TOPIRAMATE
  2. ZYPREXA ZYDUS [Concomitant]
  3. RISPERDAL [Concomitant]
     Active Substance: RISPERIDONE
  4. RIVATRIL [Concomitant]
     Active Substance: CLONAZEPAM
  5. PANTOLOC [Concomitant]
     Active Substance: PANTOPRAZOLE SODIUM

REACTIONS (2)
  - Mental impairment [None]
  - Anger [None]

NARRATIVE: CASE EVENT DATE: 20100815
